FAERS Safety Report 6186763-6 (Version None)
Quarter: 2009Q2

REPORT INFORMATION
  Report Type: 
  Country: None (occurrence: None)
  Receive Date: 20090512
  Receipt Date: 20090428
  Transmission Date: 20091009
  Serious: Yes (Death, Life-Threatening, Other)
  Sender: FDA-Public Use
  Company Number: ID-ROCHE-630287

PATIENT
  Age: 18 Month
  Sex: Male

DRUGS (1)
  1. OSELTAMIVIR [Suspect]
     Indication: AVIAN INFLUENZA
     Route: 065
     Dates: start: 20070630

REACTIONS (3)
  - DEATH [None]
  - LEPTOSPIROSIS [None]
  - RESPIRATORY FAILURE [None]
